FAERS Safety Report 15734143 (Version 1)
Quarter: 2018Q4

REPORT INFORMATION
  Report Type: Spontaneous
  Country: US (occurrence: US)
  Receive Date: 20181217
  Receipt Date: 20181217
  Transmission Date: 20190205
  Serious: Yes (Hospitalization)
  Sender: FDA-Public Use
  Company Number: None

PATIENT
  Age: 44 Year
  Sex: Female
  Weight: 112.5 kg

DRUGS (6)
  1. METFORMIN [Concomitant]
     Active Substance: METFORMIN HYDROCHLORIDE
  2. ZOFRAN [Concomitant]
     Active Substance: ONDANSETRON HYDROCHLORIDE
  3. VICTOZA [Suspect]
     Active Substance: LIRAGLUTIDE
     Indication: TYPE 2 DIABETES MELLITUS
     Dosage: ?          QUANTITY:1.2 INJECTION(S);OTHER ROUTE:SQ?
     Route: 058
     Dates: end: 20181213
  4. VICTOZA [Concomitant]
     Active Substance: LIRAGLUTIDE
  5. MULTIVITAMIN [Concomitant]
     Active Substance: VITAMINS
  6. MOTRIN [Concomitant]
     Active Substance: IBUPROFEN

REACTIONS (5)
  - Abdominal pain [None]
  - Pancreatitis [None]
  - White blood cell count increased [None]
  - Pain [None]
  - Nausea [None]

NARRATIVE: CASE EVENT DATE: 20181213
